FAERS Safety Report 5325023-X (Version None)
Quarter: 2007Q2

REPORT INFORMATION
  Report Type: 
  Country: None (occurrence: None)
  Receive Date: 20070511
  Receipt Date: 20070511
  Transmission Date: 20071010
  Serious: No
  Sender: FDA-Public Use
  Company Number: None

PATIENT
  Sex: Female
  Weight: 75 kg

DRUGS (1)
  1. VIVAGLOBIN [Suspect]
     Indication: CONGENITAL HYPOGAMMAGLOBULINAEMIA
     Dosage: 7.36 GRAMS -46 ML-  EVERY 7 DAYS  SQ
     Route: 058
     Dates: start: 20070102, end: 20070309

REACTIONS (5)
  - DRUG HYPERSENSITIVITY [None]
  - INFUSION SITE ERYTHEMA [None]
  - INFUSION SITE REACTION [None]
  - INFUSION SITE SWELLING [None]
  - SKIN IRRITATION [None]
